FAERS Safety Report 23449172 (Version 2)
Quarter: 2024Q1

REPORT INFORMATION
  Report Type: Spontaneous
  Country: US (occurrence: None)
  Receive Date: 20240129
  Receipt Date: 20240324
  Transmission Date: 20240409
  Serious: No
  Sender: FDA-Public Use
  Company Number: 2024A019607

PATIENT
  Sex: Male

DRUGS (1)
  1. BUDESONIDE\FORMOTEROL [Suspect]
     Active Substance: BUDESONIDE\FORMOTEROL
     Dosage: 80 UG, UNKNOWN UNKNOWN
     Route: 055

REACTIONS (3)
  - Sinus disorder [Unknown]
  - Rhinitis [Unknown]
  - Device breakage [Unknown]
